FAERS Safety Report 7811488-8 (Version None)
Quarter: 2011Q4

REPORT INFORMATION
  Report Type: 
  Country: None (occurrence: None)
  Receive Date: 20111013
  Receipt Date: 20111013
  Transmission Date: 20120403
  Serious: Yes (Disabling, Other)
  Sender: FDA-Public Use
  Company Number: None

PATIENT
  Sex: Male
  Weight: 22.4 kg

DRUGS (6)
  1. HEPARIN [Concomitant]
  2. ONDANSETRON [Concomitant]
  3. ONCASPAR [Suspect]
  4. VINCRISTINE [Concomitant]
  5. DAUNORUBICIN HCL [Concomitant]
  6. DIPHENHYDRAMINE HCL [Concomitant]

REACTIONS (1)
  - RESPIRATORY DISTRESS [None]
